FAERS Safety Report 4427210-1 (Version None)
Quarter: 2004Q3

REPORT INFORMATION
  Report Type: 
  Country: None (occurrence: None)
  Receive Date: 20040726
  Receipt Date: 20040420
  Transmission Date: 20050211
  Serious: No
  Sender: FDA-Public Use
  Company Number: USA031049744

PATIENT
  Age: 44 Year
  Sex: Female
  Weight: 70 kg

DRUGS (15)
  1. FORTEO [Suspect]
     Indication: OSTEOPOROSIS
     Dosage: 20 UG/DAY
     Dates: start: 20030214
  2. DURAGESIC [Concomitant]
  3. SYNTHROID [Concomitant]
  4. ACIPHEX [Concomitant]
  5. INDOMETHACIN 25MG CAP [Concomitant]
  6. NEURONTIN [Concomitant]
  7. VALIUM [Concomitant]
  8. TRAZADONE (TRAZODONE) [Concomitant]
  9. PERCOCET [Concomitant]
  10. IMITREX [Concomitant]
  11. FIORICET W/ CODEINE [Concomitant]
  12. ACTONEL [Concomitant]
  13. ZANAFLEX [Concomitant]
  14. COMBIVENT [Concomitant]
  15. FOSAMAX [Concomitant]

REACTIONS (15)
  - ANOREXIA [None]
  - ARTHRALGIA [None]
  - BONE PAIN [None]
  - BREAST MASS [None]
  - DIZZINESS [None]
  - FATIGUE [None]
  - INJECTION SITE HAEMORRHAGE [None]
  - INSOMNIA [None]
  - MYALGIA [None]
  - NAUSEA [None]
  - NOCTURIA [None]
  - PALPITATIONS [None]
  - ULTRASOUND PELVIS ABNORMAL [None]
  - VAGINAL DISCHARGE [None]
  - WEIGHT DECREASED [None]
